FAERS Safety Report 25886718 (Version 3)
Quarter: 2025Q4

REPORT INFORMATION
  Report Type: Spontaneous
  Country: EU (occurrence: EU)
  Receive Date: 20251006
  Receipt Date: 20251201
  Transmission Date: 20260118
  Serious: Yes (Hospitalization, Other)
  Sender: MYLAN
  Company Number: EU-ABBVIE-6458173

PATIENT
  Age: 52 Year
  Sex: Female

DRUGS (3)
  1. METHOTREXATE [Suspect]
     Active Substance: METHOTREXATE
     Indication: Crohn^s disease
     Dosage: 10 MILLIGRAM, QW
  2. RINVOQ [Suspect]
     Active Substance: UPADACITINIB
     Indication: Crohn^s disease
     Dosage: 45 MILLIGRAM, QD
  3. RINVOQ [Suspect]
     Active Substance: UPADACITINIB
     Dosage: 30 MILLIGRAM

REACTIONS (17)
  - Acute respiratory distress syndrome [Unknown]
  - Terminal state [Recovered/Resolved]
  - Pyrexia [Unknown]
  - Respiratory failure [Unknown]
  - Pneumocystis jirovecii pneumonia [Unknown]
  - Immunosuppression [Unknown]
  - Encephalitis viral [Recovering/Resolving]
  - Lung infiltration [Not Recovered/Not Resolved]
  - Arthritis enteropathic [Unknown]
  - Diplopia [Unknown]
  - Photophobia [Unknown]
  - Muscular weakness [Unknown]
  - Anaemia [Unknown]
  - Cytomegalovirus infection [Unknown]
  - Headache [Unknown]
  - Epstein-Barr virus infection [Unknown]
  - Infection [Unknown]
